FAERS Safety Report 10052868 (Version 2)
Quarter: 2014Q2

REPORT INFORMATION
  Report Type: Spontaneous
  Country: GB (occurrence: GB)
  Receive Date: 20140402
  Receipt Date: 20140527
  Transmission Date: 20141212
  Serious: Yes (Other)
  Sender: FDA-Public Use
  Company Number: GB-THROMBOGENICS INC-JET-2014-146

PATIENT
  Age: 83 Year
  Sex: Female

DRUGS (1)
  1. JETREA [Suspect]
     Indication: VITREOUS ADHESIONS
     Dosage: 0.125 MG, ONE TIME DOSE
     Route: 031
     Dates: start: 20140114, end: 20140114

REACTIONS (3)
  - Retinal artery occlusion [Recovered/Resolved]
  - Blindness transient [Unknown]
  - No therapeutic response [Unknown]
